FAERS Safety Report 6469522-6 (Version None)
Quarter: 2009Q4

REPORT INFORMATION
  Report Type: 
  Country: None (occurrence: None)
  Receive Date: 20091203
  Receipt Date: 20091121
  Transmission Date: 20100525
  Serious: Yes (Other)
  Sender: FDA-Public Use
  Company Number: US-PFIZER INC-2009301948

PATIENT
  Sex: Male
  Weight: 77.11 kg

DRUGS (17)
  1. TOVIAZ [Suspect]
     Indication: HYPERTONIC BLADDER
     Dosage: FREQUENCY: 1X/DAY,
     Dates: start: 20091101, end: 20091101
  2. SINEMET [Concomitant]
     Dosage: 25/100 MG EVERT 2 HR WHILE AWAKE
  3. SINEMET [Suspect]
     Dosage: 50/200 MG AT BEDTIME
  4. DOXAZOSIN MESILATE [Concomitant]
     Dosage: FREQUENCY: 2X/DAY,
  5. CYMBALTA [Concomitant]
  6. SEROQUEL [Concomitant]
  7. ARICEPT [Concomitant]
  8. NAMENDA [Concomitant]
     Dosage: FREQUENCY: TWO TIMES A DAY,
  9. ACETYLSALICYLIC ACID [Concomitant]
  10. MULTI-VITAMINS [Concomitant]
  11. PSYLLIUM [Concomitant]
     Dosage: FREQUENCY: 2X/DAY,
  12. VITAMIN B COMPLEX CAP [Concomitant]
  13. ASCORBIC ACID [Concomitant]
  14. VITAMIN D [Concomitant]
  15. VITAMIN E [Concomitant]
  16. LOVAZA [Concomitant]
  17. CALCIUM [Concomitant]

REACTIONS (4)
  - ABASIA [None]
  - CONFUSIONAL STATE [None]
  - DEPRESSION [None]
  - MOBILITY DECREASED [None]
